FAERS Safety Report 6832075-4 (Version None)
Quarter: 2010Q3

REPORT INFORMATION
  Report Type: 
  Country: None (occurrence: None)
  Receive Date: 20100712
  Receipt Date: 20100706
  Transmission Date: 20110219
  Serious: Yes (Other)
  Sender: FDA-Public Use
  Company Number: IE-ROCHE-713705

PATIENT
  Age: 60 Year
  Sex: Male

DRUGS (3)
  1. AVASTIN [Suspect]
     Indication: COLORECTAL CANCER
     Route: 042
     Dates: start: 20100706
  2. FOLINIC ACID [Concomitant]
     Indication: COLORECTAL CANCER
     Dosage: ROUTE REPORTED AS INTRAVENOUS INFUSION.
     Route: 042
     Dates: start: 20100706
  3. OXALIPLATIN [Concomitant]
     Indication: COLORECTAL CANCER
     Dosage: ROUTE REPORTED AS IV INFUSION.
     Route: 042
     Dates: start: 20100706

REACTIONS (1)
  - BLINDNESS TRANSIENT [None]
